FAERS Safety Report 6215875-3 (Version None)
Quarter: 2009Q2

REPORT INFORMATION
  Report Type: 
  Country: None (occurrence: None)
  Receive Date: 20090605
  Receipt Date: 20090528
  Transmission Date: 20091009
  Serious: Yes (Other)
  Sender: FDA-Public Use
  Company Number: US-ROCHE-632908

PATIENT
  Age: 35 Year
  Sex: Male

DRUGS (1)
  1. ACCUTANE [Suspect]
     Indication: ACNE
     Route: 048
     Dates: start: 19910801, end: 19920201

REACTIONS (7)
  - ALTERED STATE OF CONSCIOUSNESS [None]
  - EDUCATIONAL PROBLEM [None]
  - EXOSTOSIS [None]
  - MEMORY IMPAIRMENT [None]
  - PRURITUS [None]
  - SKIN LACERATION [None]
  - TENDON INJURY [None]
